FAERS Safety Report 10529845 (Version 1)
Quarter: 2014Q4

REPORT INFORMATION
  Report Type: Spontaneous
  Country: US (occurrence: None)
  Receive Date: 20141020
  Receipt Date: 20141020
  Transmission Date: 20150528
  Serious: No
  Sender: FDA-Public Use
  Company Number: None

PATIENT
  Age: 19 Year
  Sex: Female
  Weight: 70.31 kg

DRUGS (1)
  1. AZITHROMYCIN [Suspect]
     Active Substance: AZITHROMYCIN ANHYDROUS
     Indication: BRONCHITIS
     Route: 048
     Dates: start: 20141013, end: 20141017

REACTIONS (9)
  - Insomnia [None]
  - Derealisation [None]
  - Restlessness [None]
  - Dysphonia [None]
  - Fatigue [None]
  - Palpitations [None]
  - Cough [None]
  - Myalgia [None]
  - Somnolence [None]

NARRATIVE: CASE EVENT DATE: 20141016
